FAERS Safety Report 13307659 (Version 1)
Quarter: 2017Q1

REPORT INFORMATION
  Report Type: Spontaneous
  Country: DZ (occurrence: DZ)
  Receive Date: 20170308
  Receipt Date: 20170308
  Transmission Date: 20170428
  Serious: Yes (Other)
  Sender: FDA-Public Use
  Company Number: DZ-B.I. PHARMACEUTICALS,INC./RIDGEFIELD-2017-BI-012263

PATIENT
  Sex: Female

DRUGS (1)
  1. MICARDIS PLUS [Suspect]
     Active Substance: HYDROCHLOROTHIAZIDE\TELMISARTAN
     Indication: HYPERTENSION
     Route: 048

REACTIONS (1)
  - Drug ineffective [Unknown]
